FAERS Safety Report 17128885 (Version 1)
Quarter: 2019Q4

REPORT INFORMATION
  Report Type: Spontaneous
  Country: US (occurrence: US)
  Receive Date: 20191115
  Receipt Date: 20191115
  Transmission Date: 20200122
  Serious: Yes (Hospitalization)
  Sender: FDA-Public Use
  Company Number: None

PATIENT
  Sex: Female
  Weight: 62.8 kg

DRUGS (4)
  1. OLANZAPINE. [Concomitant]
     Active Substance: OLANZAPINE
  2. ALOXI [Concomitant]
     Active Substance: PALONOSETRON HYDROCHLORIDE
  3. DEXAMETHASONE. [Suspect]
     Active Substance: DEXAMETHASONE
  4. FOSAPREPITANT [Concomitant]
     Active Substance: FOSAPREPITANT

REACTIONS (4)
  - Infusion site induration [None]
  - Device related infection [None]
  - Wound infection pseudomonas [None]
  - Infusion site haematoma [None]

NARRATIVE: CASE EVENT DATE: 20191030
